FAERS Safety Report 9882601 (Version 2)
Quarter: 2014Q1

REPORT INFORMATION
  Report Type: Spontaneous
  Country: IT (occurrence: IT)
  Receive Date: 20140207
  Receipt Date: 20140228
  Transmission Date: 20141002
  Serious: Yes (Hospitalization)
  Sender: FDA-Public Use
  Company Number: IT-BRISTOL-MYERS SQUIBB COMPANY-20125779

PATIENT
  Age: 42 Year
  Sex: Male

DRUGS (3)
  1. METFORMIN HCL [Suspect]
     Indication: SUICIDE ATTEMPT
     Route: 048
     Dates: start: 20131004, end: 20131004
  2. NOVOMIX [Suspect]
     Indication: SUICIDE ATTEMPT
     Route: 058
     Dates: start: 20131004, end: 20131004
  3. LANTUS [Concomitant]
     Dosage: 1DF: 100 IU/ML SOLUTION FOR INJ?10ML/VIAL
     Route: 058

REACTIONS (3)
  - Suicide attempt [Unknown]
  - Hypoglycaemic coma [Recovered/Resolved]
  - Drug abuse [Recovered/Resolved]
